FAERS Safety Report 8113263-6 (Version None)
Quarter: 2012Q1

REPORT INFORMATION
  Report Type: 
  Country: None (occurrence: None)
  Receive Date: 20120203
  Receipt Date: 20120125
  Transmission Date: 20120608
  Serious: Yes (Other)
  Sender: FDA-Public Use
  Company Number: PHEH2011US07377

PATIENT
  Sex: Male

DRUGS (1)
  1. AREDIA [Suspect]
     Indication: MULTIPLE MYELOMA
     Dates: start: 19970701

REACTIONS (17)
  - FOOT DEFORMITY [None]
  - SEBORRHOEIC KERATOSIS [None]
  - FOLLICULITIS [None]
  - TRICUSPID VALVE INCOMPETENCE [None]
  - OSTEOPENIA [None]
  - VENTRICULAR HYPOKINESIA [None]
  - CHOLECYSTITIS [None]
  - CHEST PAIN [None]
  - DIARRHOEA [None]
  - OSTEOLYSIS [None]
  - PULMONARY VALVE INCOMPETENCE [None]
  - ACQUIRED DIAPHRAGMATIC EVENTRATION [None]
  - ARTERIOSCLEROSIS [None]
  - TINNITUS [None]
  - MITRAL VALVE INCOMPETENCE [None]
  - RENAL FAILURE [None]
  - CARDIAC FAILURE CONGESTIVE [None]
